FAERS Safety Report 25240569 (Version 2)
Quarter: 2025Q2

REPORT INFORMATION
  Report Type: Spontaneous
  Country: JP (occurrence: JP)
  Receive Date: 20250425
  Receipt Date: 20250630
  Transmission Date: 20250717
  Serious: Yes (Other)
  Sender: TEVA
  Company Number: JP-TEVA-VS-3325014

PATIENT
  Age: 86 Year
  Sex: Female

DRUGS (2)
  1. TRISENOX [Suspect]
     Active Substance: ARSENIC TRIOXIDE
     Indication: Acute promyelocytic leukaemia
     Route: 042
     Dates: start: 20250313, end: 20250406
  2. TRISENOX [Suspect]
     Active Substance: ARSENIC TRIOXIDE
     Indication: Acute promyelocytic leukaemia
     Route: 042
     Dates: start: 202504

REACTIONS (1)
  - Differentiation syndrome [Recovered/Resolved]

NARRATIVE: CASE EVENT DATE: 20250325
